FAERS Safety Report 6960882-6 (Version None)
Quarter: 2010Q3

REPORT INFORMATION
  Report Type: 
  Country: None (occurrence: None)
  Receive Date: 20100823
  Receipt Date: 20100708
  Transmission Date: 20110219
  Serious: No
  Sender: FDA-Public Use
  Company Number: 015312

PATIENT
  Sex: Male
  Weight: 54.4 kg

DRUGS (12)
  1. CIMZIA [Suspect]
     Indication: CROHN'S DISEASE
     Dosage: 400 MG 1X/MONTH SUBCUTANEOUS
     Route: 058
     Dates: start: 20080201
  2. PREDNISONE [Concomitant]
  3. FOLIC ACID [Concomitant]
  4. AMLODIPINE [Concomitant]
  5. NEXIUM [Concomitant]
  6. CALCIUM W/VITAMIN D [Concomitant]
  7. POTASSIUM [Concomitant]
  8. ACIDOPHILUS [Concomitant]
  9. VITAMIN B12 NOS [Concomitant]
  10. TETRAZEPAM [Concomitant]
  11. ATENOLOL [Concomitant]
  12. MAGNESIUM OXIDE [Concomitant]

REACTIONS (1)
  - FLATULENCE [None]
